FAERS Safety Report 5097117-8 (Version None)
Quarter: 2006Q3

REPORT INFORMATION
  Report Type: 
  Country: None (occurrence: None)
  Receive Date: 20060906
  Receipt Date: 20060828
  Transmission Date: 20061208
  Serious: Yes (Death)
  Sender: FDA-Public Use
  Company Number: JP-JNJFOC-20060801177

PATIENT
  Sex: Female
  Weight: 19.7 kg

DRUGS (12)
  1. REMICADE [Suspect]
     Indication: CROHN'S DISEASE
     Route: 042
  2. ADRENAL HORMONE PREPARATION [Suspect]
     Indication: PREMEDICATION
  3. PREDNISOLONE [Suspect]
     Indication: CROHN'S DISEASE
     Dosage: MAXIMUM DOSE 20 MG/DAY, TAPERED
     Route: 048
  4. PREDNISOLONE [Suspect]
     Route: 048
  5. SELBEX [Suspect]
     Indication: PROPHYLAXIS AGAINST GASTROINTESTINAL ULCER
     Route: 048
  6. SULFASALAZINE [Suspect]
     Indication: CROHN'S DISEASE
     Route: 048
  7. NEOPAREN [Suspect]
     Indication: PARENTERAL NUTRITION
     Route: 041
  8. NEOPAREN [Suspect]
     Route: 041
  9. CELTECT [Suspect]
     Indication: URTICARIA
     Route: 048
  10. IRRADIATED LEUCOCYTE POOR RED CELLS [Concomitant]
     Indication: TRANSFUSION
  11. ISOTONIC SODIUM CHLORIDE SOLUTION [Concomitant]
     Indication: CROHN'S DISEASE
  12. ELENTAL [Concomitant]
     Dosage: .6 TO 1.2 L/DAY
     Route: 048

REACTIONS (14)
  - ADRENAL HAEMORRHAGE [None]
  - ADRENAL INSUFFICIENCY [None]
  - CARDIO-RESPIRATORY ARREST [None]
  - DEPRESSED LEVEL OF CONSCIOUSNESS [None]
  - GRAND MAL CONVULSION [None]
  - HAEMATEMESIS [None]
  - HAEMORRHAGIC DIATHESIS [None]
  - MALAISE [None]
  - PERIPHERAL COLDNESS [None]
  - SEPSIS [None]
  - SEPTIC SHOCK [None]
  - STAPHYLOCOCCAL INFECTION [None]
  - TACHYCARDIA [None]
  - TACHYPNOEA [None]
